FAERS Safety Report 4368385-2 (Version None)
Quarter: 2004Q2

REPORT INFORMATION
  Report Type: 
  Country: None (occurrence: None)
  Receive Date: 20040602
  Receipt Date: 20040524
  Transmission Date: 20050107
  Serious: Yes (Other)
  Sender: FDA-Public Use
  Company Number: US-GLAXOSMITHKLINE-A0512344A

PATIENT
  Age: 40 Year
  Sex: Female
  Weight: 63.6 kg

DRUGS (6)
  1. IMITREX [Suspect]
     Indication: HEADACHE
     Route: 058
     Dates: start: 19990215
  2. BUTALBITAL [Concomitant]
  3. APAP TAB [Concomitant]
  4. TYLENOL W/ CODEINE [Concomitant]
  5. FIORICET [Concomitant]
  6. VICODIN [Concomitant]

REACTIONS (3)
  - ANEURYSM [None]
  - CEREBROVASCULAR ACCIDENT [None]
  - DRUG INEFFECTIVE [None]
